FAERS Safety Report 6977570-2 (Version None)
Quarter: 2010Q3

REPORT INFORMATION
  Report Type: 
  Country: None (occurrence: None)
  Receive Date: 20100913
  Receipt Date: 20100907
  Transmission Date: 20110219
  Serious: Yes (Death, Hospitalization)
  Sender: FDA-Public Use
  Company Number: TR-SP-2010-04825

PATIENT
  Age: 39 Year
  Sex: Male

DRUGS (1)
  1. BCG  THERAPEUTICS [Suspect]
     Indication: BLADDER CANCER
     Route: 042

REACTIONS (12)
  - ABDOMINAL TENDERNESS [None]
  - BOVINE TUBERCULOSIS [None]
  - CHILLS [None]
  - GASTRIC PERFORATION [None]
  - HEPATOMEGALY [None]
  - INCORRECT ROUTE OF DRUG ADMINISTRATION [None]
  - JAUNDICE [None]
  - MALAISE [None]
  - MULTI-ORGAN FAILURE [None]
  - NAUSEA [None]
  - PYREXIA [None]
  - VOMITING [None]
